FAERS Safety Report 9398626 (Version 5)
Quarter: 2014Q2

REPORT INFORMATION
  Report Type: Spontaneous
  Country: US (occurrence: US)
  Receive Date: 20130712
  Receipt Date: 20140512
  Transmission Date: 20141212
  Serious: Yes (Hospitalization, Other)
  Sender: FDA-Public Use
  Company Number: US-009507513-1307USA004424

PATIENT
  Sex: Female

DRUGS (4)
  1. FOSAMAX [Suspect]
     Indication: OSTEOPENIA
     Dosage: 70 MG, QW
     Route: 048
     Dates: start: 2003, end: 200810
  2. FOSAMAX [Suspect]
     Indication: PROPHYLAXIS
  3. BONIVA [Concomitant]
     Indication: OSTEOPENIA
     Dosage: UNK
     Dates: start: 2008, end: 2010
  4. BONIVA [Concomitant]
     Indication: PROPHYLAXIS

REACTIONS (14)
  - Femur fracture [Unknown]
  - Intramedullary rod insertion [Unknown]
  - Intramedullary rod insertion [Unknown]
  - Medical device removal [Unknown]
  - Femur fracture [Unknown]
  - Impaired healing [Unknown]
  - Type 2 diabetes mellitus [Unknown]
  - Biopsy bone [Unknown]
  - Hypertension [Unknown]
  - Arthropathy [Unknown]
  - Rotator cuff syndrome [Unknown]
  - Spinal osteoarthritis [Unknown]
  - Osteoporosis [Unknown]
  - Treatment failure [Unknown]
